FAERS Safety Report 10190640 (Version 1)
Quarter: 2014Q2

REPORT INFORMATION
  Report Type: Spontaneous
  Country: BR (occurrence: BR)
  Receive Date: 20140523
  Receipt Date: 20140523
  Transmission Date: 20141212
  Serious: Yes (Other)
  Sender: FDA-Public Use
  Company Number: BR-AMGEN INC.-BRASP2014037908

PATIENT
  Age: 75 Year
  Sex: Female
  Weight: 60 kg

DRUGS (2)
  1. PROLIA [Suspect]
     Indication: OSTEOPOROSIS
     Dosage: 1INJ SEE DOSAGE TEXT
     Route: 058
     Dates: start: 20131122
  2. CALCIUM + VITAMIN D                /01483701/ [Concomitant]
     Dosage: UNK

REACTIONS (7)
  - VIIth nerve paralysis [Recovering/Resolving]
  - Cheilitis [Recovering/Resolving]
  - Pain [Not Recovered/Not Resolved]
  - Movement disorder [Not Recovered/Not Resolved]
  - Nausea [Not Recovered/Not Resolved]
  - Plantar fasciitis [Recovered/Resolved]
  - Pain in jaw [Recovering/Resolving]
